FAERS Safety Report 6038787-7 (Version None)
Quarter: 2009Q1

REPORT INFORMATION
  Report Type: 
  Country: None (occurrence: None)
  Receive Date: 20090115
  Receipt Date: 20080428
  Transmission Date: 20090719
  Serious: No
  Sender: FDA-Public Use
  Company Number: US-ABBOTT-08P-163-0449381-00

PATIENT
  Sex: Male
  Weight: 80.812 kg

DRUGS (4)
  1. ADVICOR [Suspect]
     Indication: BLOOD CHOLESTEROL INCREASED
     Dosage: 1000MG/20MG
     Route: 048
     Dates: start: 20080416, end: 20080426
  2. PRINZIDE [Concomitant]
     Indication: BLOOD PRESSURE
     Dosage: 20-12.5MG DAILY
     Route: 048
  3. PAIN PILL [Concomitant]
     Indication: BACK PAIN
     Route: 048
  4. MUSCLE RELAXANTS [Concomitant]
     Indication: BACK PAIN
     Route: 048

REACTIONS (4)
  - ASTHENIA [None]
  - BLISTER [None]
  - DIZZINESS [None]
  - MYALGIA [None]
